FAERS Safety Report 4877421-6 (Version None)
Quarter: 2006Q1

REPORT INFORMATION
  Report Type: 
  Country: None (occurrence: None)
  Receive Date: 20060109
  Receipt Date: 20051227
  Transmission Date: 20060701
  Serious: Yes (Disabling, Other)
  Sender: FDA-Public Use
  Company Number: 2005153428

PATIENT
  Age: 48 Year
  Sex: Male

DRUGS (3)
  1. XANAX [Suspect]
     Indication: ANXIETY
     Dosage: 2 MG (1 MG, 2 IN 1 D)
     Dates: start: 19940101
  2. ALPRAZOLAM [Suspect]
     Indication: ANXIETY
  3. ALCOHOL (ETHANOL) [Suspect]
     Indication: ILL-DEFINED DISORDER
     Dosage: ORAL
     Route: 048

REACTIONS (8)
  - BLINDNESS [None]
  - DIABETES MELLITUS [None]
  - DYSSTASIA [None]
  - ERECTILE DYSFUNCTION [None]
  - FALL [None]
  - OPTIC NERVE DISORDER [None]
  - SOMNOLENCE [None]
  - URINARY INCONTINENCE [None]
